FAERS Safety Report 9355385 (Version 1)
Quarter: 2013Q2

REPORT INFORMATION
  Report Type: Spontaneous
  Country: US (occurrence: US)
  Receive Date: 20130619
  Receipt Date: 20130619
  Transmission Date: 20140414
  Serious: Yes (Hospitalization)
  Sender: FDA-Public Use
  Company Number: US-JNJFOC-20130607236

PATIENT
  Age: 42 Year
  Sex: Male

DRUGS (2)
  1. DARUNAVIR [Suspect]
     Indication: HIV INFECTION
     Route: 065
  2. ABACAVIR W/LAMIVUDINE [Suspect]
     Indication: HIV INFECTION
     Route: 065

REACTIONS (3)
  - Toxic epidermal necrolysis [Recovered/Resolved]
  - Renal failure acute [Recovering/Resolving]
  - Pneumonia [Recovering/Resolving]
